FAERS Safety Report 6031682-9 (Version None)
Quarter: 2009Q1

REPORT INFORMATION
  Report Type: 
  Country: None (occurrence: None)
  Receive Date: 20090108
  Receipt Date: 20090107
  Transmission Date: 20090719
  Serious: Yes (Hospitalization)
  Sender: FDA-Public Use
  Company Number: A0737552A

PATIENT
  Age: 56 Year
  Sex: Female
  Weight: 85.5 kg

DRUGS (13)
  1. AVANDIA [Suspect]
     Route: 048
     Dates: start: 20041201, end: 20070601
  2. AVANDAMET [Suspect]
     Route: 048
     Dates: start: 20041230, end: 20070601
  3. ALTACE [Concomitant]
  4. ZOCOR [Concomitant]
  5. LOPRESSOR [Concomitant]
  6. LEXAPRO [Concomitant]
  7. DOXYCYCLINE [Concomitant]
  8. DURAPEN [Concomitant]
  9. PERCOCET [Concomitant]
  10. PEPCID [Concomitant]
     Dosage: 20MG TWICE PER DAY
  11. COUMADIN [Concomitant]
     Dosage: 5MG AT NIGHT
  12. LOPID [Concomitant]
  13. AMBIEN [Concomitant]

REACTIONS (2)
  - MYOCARDIAL INFARCTION [None]
  - PULMONARY EMBOLISM [None]
